FAERS Safety Report 8951108 (Version 1)
Quarter: 2012Q4

REPORT INFORMATION
  Report Type: 
  Country: US (occurrence: US)
  Receive Date: 20121207
  Receipt Date: 20121207
  Transmission Date: 20130627
  Serious: Yes (Disabling)
  Sender: FDA-Public Use
  Company Number: PHEH2012US022149

PATIENT
  Age: 72 Year
  Sex: Female
  Weight: 40 kg

DRUGS (4)
  1. EXELON PATCH [Suspect]
     Indication: DEMENTIA
     Dosage: 4.6 mg, / 24 Hrs
     Route: 062
  2. EXELON PATCH [Suspect]
     Dosage: 9.5 mg, / 24 Hrs
     Route: 062
     Dates: start: 20120711
  3. NAMENDA [Concomitant]
     Indication: DEMENTIA
     Dosage: 10 mg, BID
     Route: 048
  4. CEREFOLIN NAC [Concomitant]
     Dosage: 1 DF, daily
     Route: 048

REACTIONS (4)
  - Abnormal behaviour [Unknown]
  - Crying [Unknown]
  - Aggression [Unknown]
  - Agitation [Unknown]
